FAERS Safety Report 5480452-9 (Version None)
Quarter: 2007Q4

REPORT INFORMATION
  Report Type: 
  Country: None (occurrence: None)
  Receive Date: 20071009
  Receipt Date: 20071004
  Transmission Date: 20080405
  Serious: Yes (Other)
  Sender: FDA-Public Use
  Company Number: B0487091A

PATIENT
  Age: 70 Year
  Sex: Female

DRUGS (7)
  1. ZOVIRAX [Suspect]
     Indication: HERPES ZOSTER
     Dosage: 400MG FIVE TIMES PER DAY
     Route: 048
     Dates: start: 20070906, end: 20070908
  2. CANDESARTAN CILEXETIL [Concomitant]
     Route: 048
  3. KLARICID [Concomitant]
     Route: 048
  4. THYRADIN S [Concomitant]
     Route: 048
  5. MARZULENE S [Concomitant]
     Route: 048
  6. MUCOSOLVAN [Concomitant]
     Route: 048
  7. PHOSBLOCK [Concomitant]
     Route: 048

REACTIONS (3)
  - DEPRESSED LEVEL OF CONSCIOUSNESS [None]
  - SOMNOLENCE [None]
  - URINE OUTPUT INCREASED [None]
